FAERS Safety Report 7046897-0 (Version None)
Quarter: 2010Q4

REPORT INFORMATION
  Report Type: 
  Country: None (occurrence: None)
  Receive Date: 20101015
  Receipt Date: 20101005
  Transmission Date: 20110411
  Serious: Yes (Hospitalization, Other)
  Sender: FDA-Public Use
  Company Number: PHHY2010US34457

PATIENT
  Sex: Male
  Weight: 25.1 kg

DRUGS (4)
  1. EXJADE [Suspect]
     Indication: SICKLE CELL ANAEMIA
     Dosage: 500 MG, QD
     Route: 048
     Dates: start: 20100408, end: 20101005
  2. EXJADE [Suspect]
     Indication: IRON OVERLOAD
  3. FOLIC ACID [Concomitant]
  4. ASPIRIN [Concomitant]

REACTIONS (3)
  - CEREBROVASCULAR ACCIDENT [None]
  - HEPATIC ENZYME INCREASED [None]
  - SURGERY [None]
